FAERS Safety Report 8169834-4 (Version None)
Quarter: 2012Q1

REPORT INFORMATION
  Report Type: 
  Country: None (occurrence: None)
  Receive Date: 20120104
  Receipt Date: 20111130
  Transmission Date: 20120608
  Serious: No
  Sender: FDA-Public Use
  Company Number: 2011HGS-002879

PATIENT
  Age: 25 Year
  Sex: Female
  Weight: 86.1834 kg

DRUGS (6)
  1. PREDNISONE TAB [Concomitant]
  2. PLAQUENIL [Concomitant]
  3. CELLCEPT [Concomitant]
  4. FOLIC ACID [Concomitant]
  5. BENLYSTA [Suspect]
     Indication: SYSTEMIC LUPUS ERYTHEMATOSUS
     Dosage: 10 MG/KG, 1 IN 28 D, INTRAVENOUS DRIP
     Route: 041
     Dates: start: 20111025
  6. METHOTREXATE [Concomitant]

REACTIONS (2)
  - PRURITUS [None]
  - RASH VESICULAR [None]
